FAERS Safety Report 6513063-4 (Version None)
Quarter: 2009Q4

REPORT INFORMATION
  Report Type: 
  Country: None (occurrence: None)
  Receive Date: 20091222
  Receipt Date: 20091222
  Transmission Date: 20100525
  Serious: Yes (Death)
  Sender: FDA-Public Use
  Company Number: None

PATIENT
  Age: 78 Year
  Sex: Female
  Weight: 72.5755 kg

DRUGS (1)
  1. MULTAQ [Suspect]
     Indication: TACHYARRHYTHMIA
     Dosage: 400 MG BID PO
     Route: 048
     Dates: start: 20091119, end: 20091207

REACTIONS (1)
  - TOXIC EPIDERMAL NECROLYSIS [None]
